FAERS Safety Report 25757201 (Version 1)
Quarter: 2025Q3

REPORT INFORMATION
  Report Type: Spontaneous
  Country: CN (occurrence: CN)
  Receive Date: 20250903
  Receipt Date: 20250903
  Transmission Date: 20251020
  Serious: Yes (Hospitalization)
  Sender: EMD SERONO INC
  Company Number: CN-Merck Healthcare KGaA-2025043786

PATIENT
  Age: 34 Year
  Sex: Female

DRUGS (4)
  1. GONAL-F [Suspect]
     Active Substance: FOLLITROPIN
     Indication: Infertility female
     Dates: start: 20241009, end: 20241020
  2. LUVERIS [Suspect]
     Active Substance: LUTROPIN ALFA
     Indication: Infertility female
     Dates: start: 20241019, end: 20241020
  3. PROGESTERONE [Concomitant]
     Active Substance: PROGESTERONE
     Indication: Luteal phase deficiency
     Dates: start: 20241102
  4. DYDROGESTERONE [Concomitant]
     Active Substance: DYDROGESTERONE
     Indication: Luteal phase deficiency
     Dates: start: 20241102

REACTIONS (1)
  - Ovarian hyperstimulation syndrome [Recovering/Resolving]

NARRATIVE: CASE EVENT DATE: 20241104
